FAERS Safety Report 7589679-3 (Version None)
Quarter: 2011Q3

REPORT INFORMATION
  Report Type: 
  Country: None (occurrence: None)
  Receive Date: 20110705
  Receipt Date: 20110621
  Transmission Date: 20111222
  Serious: Yes (Hospitalization)
  Sender: FDA-Public Use
  Company Number: CH-US-EMD SERONO, INC.-7027021

PATIENT
  Sex: Female

DRUGS (3)
  1. IBRUPROFEN [Concomitant]
  2. REBIF [Suspect]
     Indication: PRODUCT USED FOR UNKNOWN INDICATION
     Dates: start: 20100910
  3. REBIF [Suspect]
     Route: 058

REACTIONS (8)
  - ARTHRALGIA [None]
  - PANCREATITIS [None]
  - CHOLELITHIASIS [None]
  - INFLAMMATION [None]
  - MUSCULAR WEAKNESS [None]
  - HEPATIC ENZYME INCREASED [None]
  - WEIGHT DECREASED [None]
  - ERYTHEMA [None]
